FAERS Safety Report 6802153-4 (Version None)
Quarter: 2010Q2

REPORT INFORMATION
  Report Type: 
  Country: None (occurrence: None)
  Receive Date: 20100629
  Receipt Date: 20081204
  Transmission Date: 20101027
  Serious: No
  Sender: FDA-Public Use
  Company Number: US-PFIZER INC-2008150557

PATIENT
  Sex: Male
  Weight: 88.9 kg

DRUGS (6)
  1. GENOTROPIN [Suspect]
     Indication: BLOOD GROWTH HORMONE DECREASED
     Dates: start: 20080101
  2. WELLBUTRIN [Concomitant]
     Dosage: UNK
  3. MOBIC [Concomitant]
     Indication: BACK PAIN
     Dosage: UNK
  4. CHORIONIC GONADTROPIN [Concomitant]
     Dosage: UNK
  5. ANASTROZOLE [Concomitant]
     Dosage: UNK
  6. TESTOSTERONE [Concomitant]
     Dosage: UNK

REACTIONS (3)
  - COUGH [None]
  - INSOMNIA [None]
  - THROAT IRRITATION [None]
